FAERS Safety Report 17690257 (Version 2)
Quarter: 2020Q2

REPORT INFORMATION
  Report Type: Spontaneous
  Country: US (occurrence: US)
  Receive Date: 20200421
  Receipt Date: 20200424
  Transmission Date: 20200714
  Serious: No
  Sender: FDA-Public Use
  Company Number: NVSC2020US103204

PATIENT
  Age: 39 Year
  Sex: Male

DRUGS (1)
  1. OCTREOTIDE LAR SANDOZ [Suspect]
     Active Substance: OCTREOTIDE ACETATE
     Indication: PRODUCT USED FOR UNKNOWN INDICATION
     Dosage: UNK
     Route: 065
     Dates: start: 20200413

REACTIONS (1)
  - Product contamination with body fluid [Recovered/Resolved]

NARRATIVE: CASE EVENT DATE: 20200413
